FAERS Safety Report 19948178 (Version 2)
Quarter: 2021Q4

REPORT INFORMATION
  Report Type: Report from Study
  Country: US (occurrence: US)
  Receive Date: 20211012
  Receipt Date: 20211129
  Transmission Date: 20220303
  Serious: Yes (Other)
  Sender: FDA-Public Use
  Company Number: US-GILEAD-2021-0552223

PATIENT
  Age: 88 Year
  Sex: Male

DRUGS (5)
  1. RANOLAZINE [Suspect]
     Active Substance: RANOLAZINE
     Indication: Product used for unknown indication
     Route: 065
  2. ENZALUTAMIDE [Suspect]
     Active Substance: ENZALUTAMIDE
     Indication: Illness
     Dosage: 160 MG
     Route: 048
     Dates: start: 201811
  3. ENZALUTAMIDE [Suspect]
     Active Substance: ENZALUTAMIDE
     Dosage: 160 MG, QD
     Route: 048
     Dates: start: 20190207
  4. ENZALUTAMIDE [Suspect]
     Active Substance: ENZALUTAMIDE
     Dosage: 40 MG
     Route: 048
  5. ENZALUTAMIDE [Suspect]
     Active Substance: ENZALUTAMIDE
     Dosage: 160 UNK
     Route: 048
     Dates: start: 20210311

REACTIONS (20)
  - Thyroid cancer recurrent [Unknown]
  - Prostatic specific antigen increased [Recovering/Resolving]
  - Throat irritation [Unknown]
  - Gait inability [Unknown]
  - Arthropathy [Unknown]
  - Gait disturbance [Unknown]
  - Condition aggravated [Unknown]
  - Confusional state [Unknown]
  - Amnesia [Unknown]
  - Memory impairment [Unknown]
  - Condition aggravated [Unknown]
  - Fatigue [Unknown]
  - Cognitive disorder [Unknown]
  - Condition aggravated [Unknown]
  - Hypoacusis [Not Recovered/Not Resolved]
  - Balance disorder [Unknown]
  - Condition aggravated [Unknown]
  - Fall [Unknown]
  - Head injury [Unknown]
  - Decreased appetite [Unknown]

NARRATIVE: CASE EVENT DATE: 20191201
